FAERS Safety Report 13939373 (Version 2)
Quarter: 2017Q3

REPORT INFORMATION
  Report Type: Report from Study
  Country: BR (occurrence: BR)
  Receive Date: 20170906
  Receipt Date: 20170920
  Transmission Date: 20171127
  Serious: Yes (Other)
  Sender: FDA-Public Use
  Company Number: PHHY2017BR130742

PATIENT
  Sex: Male

DRUGS (1)
  1. EXELON PATCH [Suspect]
     Active Substance: RIVASTIGMINE
     Indication: PRODUCT USED FOR UNKNOWN INDICATION
     Dosage: 3 DF (4.6 MG, QD PATCH 5 (CM2)), QD
     Route: 062

REACTIONS (4)
  - Diabetes mellitus [Unknown]
  - Incorrect dose administered [Recovered/Resolved]
  - Drug prescribing error [Recovered/Resolved]
  - Drug intolerance [Unknown]
